FAERS Safety Report 25172411 (Version 1)
Quarter: 2025Q2

REPORT INFORMATION
  Report Type: Spontaneous
  Country: GB (occurrence: GB)
  Receive Date: 20250408
  Receipt Date: 20250408
  Transmission Date: 20250717
  Serious: Yes (Other)
  Sender: TEVA
  Company Number: GB-MHRA-TPP6980336C3490659YC1743595234357

PATIENT
  Age: 83 Year
  Sex: Male
  Weight: 69 kg

DRUGS (13)
  1. BISOPROLOL [Suspect]
     Active Substance: BISOPROLOL
     Indication: Product used for unknown indication
     Dosage: TAKE ONE DAILY AT NIGHT TIME
     Route: 065
     Dates: start: 20250304
  2. ATORVASTATIN [Concomitant]
     Active Substance: ATORVASTATIN
     Indication: Product used for unknown indication
     Dosage: TAKE ONE AT NIGHT, DAILY DOSE: 1 DOSAGE FORM DAILY
     Route: 065
     Dates: start: 20231219
  3. MACROGOL COMPOUND [Concomitant]
     Indication: Product used for unknown indication
     Dosage: TAKE ONE SACHET DAILY
     Route: 065
     Dates: start: 20231219
  4. FUROSEMIDE [Concomitant]
     Active Substance: FUROSEMIDE
     Indication: Product used for unknown indication
     Dosage: TAKE ONE IN THE MORNING
     Dates: start: 20231219
  5. RAMIPRIL [Concomitant]
     Active Substance: RAMIPRIL
     Indication: Product used for unknown indication
     Dosage: TAKE ONE DAILY
     Route: 065
     Dates: start: 20231219
  6. AMLODIPINE [Concomitant]
     Active Substance: AMLODIPINE BESYLATE
     Indication: Product used for unknown indication
     Dosage: TAKE ONE DAILY, DAILY DOSE : 1 DOSAGE FORM DAILY
     Route: 065
     Dates: start: 20231219
  7. DOXAZOSIN [Concomitant]
     Active Substance: DOXAZOSIN MESYLATE
     Indication: Product used for unknown indication
     Dosage: TAKE ONE IN THE MORNING, DAILY DOSE : 1 DOSAGE FORM DAILY
     Route: 065
     Dates: start: 20231219
  8. SENNA [Concomitant]
     Active Substance: SENNOSIDES
     Indication: Product used for unknown indication
     Dosage: TAKE TWO AT NIGHT, DAILY DOSE: 2 DOSAGE FORM DAILY
     Route: 065
     Dates: start: 20250129
  9. EMPAGLIFLOZIN [Concomitant]
     Active Substance: EMPAGLIFLOZIN
     Indication: Product used for unknown indication
     Dosage: TAKE ONE DAILY, DAILY DOSE : 1 DOSAGE FORM DAILY
     Route: 065
     Dates: start: 20231219
  10. OMEPRAZOLE [Concomitant]
     Active Substance: OMEPRAZOLE
     Indication: Product used for unknown indication
     Dosage: TAKE ONE DAILY, DAILY DOSE : 1 DOSAGE FORM DAILY
     Route: 065
     Dates: start: 20250218
  11. ASPIRIN [Concomitant]
     Active Substance: ASPIRIN
     Indication: Product used for unknown indication
     Dosage: TAKE ONE DAILY, DAILY DOSE : 1 DOSAGE FORM DAILY
     Route: 065
     Dates: start: 20240308
  12. FERROUS SULFATE [Concomitant]
     Active Substance: FERROUS SULFATE
     Indication: Product used for unknown indication
     Dosage: TAKE ONE DAILY, DAILY DOSE : 1 DOSAGE FORM DAILY
     Route: 065
     Dates: start: 20250201
  13. TAMSULOSIN HYDROCHLORIDE [Concomitant]
     Active Substance: TAMSULOSIN HYDROCHLORIDE
     Indication: Product used for unknown indication
     Dosage: TAKE ONE DAILY, DAILY DOSE : 1 DOSAGE FORM DAILY
     Route: 065
     Dates: start: 20231219

REACTIONS (4)
  - Wheezing [Recovered/Resolved]
  - Dyspnoea [Unknown]
  - Malaise [Unknown]
  - Fatigue [Unknown]
